FAERS Safety Report 19686038 (Version 1)
Quarter: 2021Q3

REPORT INFORMATION
  Report Type: Spontaneous
  Country: US (occurrence: US)
  Receive Date: 20210811
  Receipt Date: 20210811
  Transmission Date: 20211014
  Serious: No
  Sender: FDA-Public Use
  Company Number: US-PERRIGO-20US014725

PATIENT
  Sex: Female
  Weight: 59.86 kg

DRUGS (9)
  1. PILOCARPINE. [Concomitant]
     Active Substance: PILOCARPINE
     Indication: GLAUCOMA
     Dosage: UNKNOWN, UNKNOWN
     Route: 047
     Dates: start: 2006
  2. LORATADINE. [Suspect]
     Active Substance: LORATADINE
     Indication: SNEEZING
     Dosage: 10 MG, SINGLE
     Route: 048
     Dates: start: 20201009, end: 20201009
  3. DORZOLAMIDE [Concomitant]
     Active Substance: DORZOLAMIDE
     Indication: GLAUCOMA
     Dosage: UNKNOWN, UNKNOWN
     Route: 047
     Dates: start: 2006
  4. LATANOPROST. [Concomitant]
     Active Substance: LATANOPROST
     Indication: GLAUCOMA
     Dosage: UNKNOWN, UNKNOWN
     Route: 047
     Dates: start: 2006
  5. ADVAIR HFA [Concomitant]
     Active Substance: FLUTICASONE PROPIONATE\SALMETEROL XINAFOATE
     Indication: ASTHMA
     Dosage: 250/50
     Route: 055
  6. PROAIR HFA [Concomitant]
     Active Substance: ALBUTEROL SULFATE
     Indication: ASTHMA
     Dosage: UNKNOWN, UNKNOWN
     Route: 055
  7. TRIMOX                             /00086101/ [Concomitant]
     Active Substance: SULFAMETHOXAZOLE\TRIMETHOPRIM
     Indication: EYE OPERATION
     Dosage: UNKNOWN, UNKNOWN
     Route: 047
     Dates: start: 20200924, end: 20201007
  8. PREDNISONE. [Concomitant]
     Active Substance: PREDNISONE
     Indication: EYE OPERATION
     Dosage: UNKNOWN, UNKNOWN
     Route: 047
     Dates: start: 20200924
  9. LORATADINE. [Suspect]
     Active Substance: LORATADINE
     Indication: EYE PRURITUS
     Dosage: 10 MG, QD
     Route: 048
     Dates: start: 2017, end: 2017

REACTIONS (1)
  - Somnolence [Recovered/Resolved]

NARRATIVE: CASE EVENT DATE: 2017
